FAERS Safety Report 7451890-X (Version None)
Quarter: 2011Q2

REPORT INFORMATION
  Report Type: 
  Country: None (occurrence: None)
  Receive Date: 20110422
  Receipt Date: 20110326
  Transmission Date: 20111010
  Serious: Yes (Hospitalization)
  Sender: FDA-Public Use
  Company Number: 2011-02

PATIENT
  Sex: Male

DRUGS (2)
  1. DEGREE ANTIPERSPIRANT/DEODORANT COOL RUSH INV. SOLID [Suspect]
     Indication: HYPERHIDROSIS
     Dosage: 2 OR 3 DAYS/UNDERARM
     Dates: start: 20110311, end: 20110315
  2. DEGREE ANTIPERSPIRANT/DEODORANT COOL RUSH INV. SOLID [Suspect]
     Indication: PROPHYLAXIS
     Dosage: 2 OR 3 DAYS/UNDERARM
     Dates: start: 20110311, end: 20110315

REACTIONS (3)
  - PAIN [None]
  - LOCALISED INFECTION [None]
  - SURGERY [None]
